FAERS Safety Report 6216469-6 (Version None)
Quarter: 2009Q2

REPORT INFORMATION
  Report Type: 
  Country: None (occurrence: None)
  Receive Date: 20090605
  Receipt Date: 20090527
  Transmission Date: 20091009
  Serious: Yes (Hospitalization, Other)
  Sender: FDA-Public Use
  Company Number: ES-AVENTIS-200912977EU

PATIENT
  Age: 51 Year
  Sex: Female

DRUGS (6)
  1. SEGURIL                            /00032601/ [Suspect]
     Indication: PAIN
     Route: 048
     Dates: start: 20090116, end: 20090122
  2. ENALAPRIL [Suspect]
     Route: 048
     Dates: start: 20070101
  3. ARCOXIA [Suspect]
     Indication: DEPRESSION
     Dosage: DOSE: UNK
     Route: 048
     Dates: start: 20090116, end: 20090122
  4. FLUOXETINE [Concomitant]
     Indication: DEPRESSION
     Route: 048
  5. DIAZEPAM [Concomitant]
     Route: 048
     Dates: start: 20080101
  6. METFORMIN HYDROCHLORIDE [Concomitant]
     Route: 048

REACTIONS (2)
  - DRUG INTERACTION [None]
  - RENAL FAILURE ACUTE [None]
